FAERS Safety Report 9409553 (Version 1)
Quarter: 2013Q3

REPORT INFORMATION
  Report Type: Spontaneous
  Country: DE (occurrence: DE)
  Receive Date: 20130719
  Receipt Date: 20130719
  Transmission Date: 20140515
  Serious: Yes (Death, Hospitalization)
  Sender: FDA-Public Use
  Company Number: DE-PFIZER INC-2013207284

PATIENT
  Age: 84 Year
  Sex: Male

DRUGS (1)
  1. AMPICILLIN SODIUM/SULBACTAM SODIUM [Suspect]
     Indication: BRONCHITIS
     Dosage: UNK

REACTIONS (10)
  - Cardiac arrest [Fatal]
  - Drug effect incomplete [Fatal]
  - Refusal of treatment by patient [None]
  - Blood lactate dehydrogenase increased [None]
  - Blood urea increased [None]
  - Blood uric acid increased [None]
  - Glomerular filtration rate decreased [None]
  - Blood creatinine increased [None]
  - Dehydration [None]
  - Renal failure acute [None]
